FAERS Safety Report 9273252 (Version 1)
Quarter: 2013Q2

REPORT INFORMATION
  Report Type: Spontaneous
  Country: FR (occurrence: FR)
  Receive Date: 20130506
  Receipt Date: 20130506
  Transmission Date: 20140414
  Serious: Yes (Other)
  Sender: FDA-Public Use
  Company Number: PHHY2013FR041639

PATIENT
  Sex: Female

DRUGS (4)
  1. VALPROIC ACID [Suspect]
     Dosage: UNK UKN, UNK
     Route: 064
  2. LAMOTRIGINE [Suspect]
     Dosage: UNK UKN, UNK
     Route: 064
  3. LEVETIRACETAM [Suspect]
     Dosage: UNK UKN, UNK
     Route: 064
  4. CLOBAZAM [Suspect]
     Dosage: UNK UKN, UNK
     Route: 064

REACTIONS (2)
  - Hypoglycaemia neonatal [Unknown]
  - Hypotonia [Unknown]
